FAERS Safety Report 4296330-7 (Version None)
Quarter: 2004Q1

REPORT INFORMATION
  Report Type: 
  Country: None (occurrence: None)
  Receive Date: 20040213
  Receipt Date: 20040213
  Transmission Date: 20041129
  Serious: Yes (Hospitalization)
  Sender: FDA-Public Use
  Company Number: None

PATIENT
  Sex: Female
  Weight: 72.5755 kg

DRUGS (9)
  1. LANOXIN [Suspect]
     Indication: CARDIAC DISORDER
     Dosage: 0.125 MG PO QD
     Route: 048
  2. K-DUR 10 [Concomitant]
  3. GLUCOTROL XL [Concomitant]
  4. AVANDIA [Concomitant]
  5. HYDRALAZINE HCL [Concomitant]
  6. LASIX [Concomitant]
  7. COREG [Concomitant]
  8. DIOVAN [Concomitant]
  9. COUMADIN [Concomitant]

REACTIONS (4)
  - ABDOMINAL DISCOMFORT [None]
  - ANOREXIA [None]
  - RETCHING [None]
  - VOMITING [None]
